FAERS Safety Report 4339665-1 (Version None)
Quarter: 2004Q1

REPORT INFORMATION
  Report Type: 
  Country: None (occurrence: None)
  Receive Date: 20040329
  Receipt Date: 20040105
  Transmission Date: 20041129
  Serious: No
  Sender: FDA-Public Use
  Company Number: 04P-163-0246176-00

PATIENT
  Age: 47 Year
  Sex: Female
  Weight: 89.8122 kg

DRUGS (10)
  1. HUMIRA [Suspect]
     Indication: RHEUMATOID ARTHRITIS
     Dosage: 40 MG, 1 IN 2 WK, SUBCUTANEOUS
     Route: 058
     Dates: start: 20031201
  2. PREDNISONE [Concomitant]
  3. METHOTREXATE SODIUM [Concomitant]
  4. CALCIUM [Concomitant]
  5. FOLIC ACID [Concomitant]
  6. DOCUSATE SODIUM [Concomitant]
  7. ESTROGENIC SUBSTANCE [Concomitant]
  8. RISEDRONATE SODIUM [Concomitant]
  9. DILTIAZEM [Concomitant]
  10. DOXYCYCLINE [Concomitant]

REACTIONS (1)
  - HAEMATOCHEZIA [None]
